FAERS Safety Report 9221254 (Version 1)
Quarter: 2013Q2

REPORT INFORMATION
  Report Type: Spontaneous
  Country: US (occurrence: US)
  Receive Date: 20130410
  Receipt Date: 20130410
  Transmission Date: 20140414
  Serious: Yes (Congenital Anomaly)
  Sender: FDA-Public Use
  Company Number: US-009507513-1304USA002978

PATIENT
  Sex: Female

DRUGS (4)
  1. SINGULAIR [Suspect]
     Indication: ASTHMA
     Route: 064
  2. ALBUTEROL [Suspect]
     Indication: ASTHMA
     Route: 064
  3. ZYRTEC [Concomitant]
  4. YASMIN [Concomitant]

REACTIONS (2)
  - Congenital hand malformation [Unknown]
  - Foetal exposure during pregnancy [Unknown]
